FAERS Safety Report 11182835 (Version 1)
Quarter: 2015Q2

REPORT INFORMATION
  Report Type: Spontaneous
  Country: CN (occurrence: CN)
  Receive Date: 20150611
  Receipt Date: 20150611
  Transmission Date: 20150821
  Serious: Yes (Hospitalization, Other)
  Sender: FDA-Public Use
  Company Number: PHHY2015CN067812

PATIENT
  Age: 74 Year
  Sex: Male
  Weight: 52 kg

DRUGS (6)
  1. ZOLEDRONATE [Suspect]
     Active Substance: ZOLEDRONIC ACID
     Indication: METASTASES TO BONE
     Dosage: 4 MG, UNK
     Route: 041
     Dates: start: 20140901
  2. NEDAPLATIN [Suspect]
     Active Substance: NEDAPLATIN
     Indication: METASTASES TO BONE
     Dosage: 80 MG, UNK
     Route: 065
     Dates: start: 20140829
  3. DEXAMETHASONE. [Concomitant]
     Active Substance: DEXAMETHASONE
     Indication: VOMITING
     Dosage: 5 MG, UNK
     Route: 042
  4. AZASETRON [Concomitant]
     Active Substance: AZASETRON
     Indication: VOMITING
     Dosage: 10 MG, UNK
     Route: 042
     Dates: start: 20140829
  5. GEMCITABINE [Suspect]
     Active Substance: GEMCITABINE\GEMCITABINE HYDROCHLORIDE
     Indication: METASTASES TO BONE
     Dosage: 1.4 G, UNK
     Route: 065
     Dates: start: 20140829
  6. DEXAMETHASONE. [Concomitant]
     Active Substance: DEXAMETHASONE
     Indication: PYREXIA
     Dosage: 5 MG, UNK
     Route: 048
     Dates: start: 20140829

REACTIONS (3)
  - Bone marrow failure [Unknown]
  - Pyrexia [Recovered/Resolved]
  - Neutrophil percentage increased [Unknown]

NARRATIVE: CASE EVENT DATE: 20140902
